FAERS Safety Report 9599735 (Version 2)
Quarter: 2013Q4

REPORT INFORMATION
  Report Type: Spontaneous
  Country: US (occurrence: US)
  Receive Date: 20131004
  Receipt Date: 20131004
  Transmission Date: 20140711
  Serious: No
  Sender: FDA-Public Use
  Company Number: US-AMGEN-USASP2013028319

PATIENT
  Age: 54 Year
  Sex: Female
  Weight: 81.63 kg

DRUGS (4)
  1. ENBREL [Suspect]
     Indication: RHEUMATOID ARTHRITIS
     Dosage: UNK
     Dates: end: 2012
  2. NEURONTIN [Concomitant]
     Dosage: UNK
  3. LORTAB                             /00607101/ [Concomitant]
     Dosage: UNK
  4. CYMBALTA [Concomitant]
     Dosage: UNK

REACTIONS (2)
  - Rash erythematous [Unknown]
  - Rash pruritic [Unknown]
